FAERS Safety Report 14767435 (Version 4)
Quarter: 2018Q3

REPORT INFORMATION
  Report Type: Spontaneous
  Country: US (occurrence: US)
  Receive Date: 20180417
  Receipt Date: 20180711
  Transmission Date: 20181010
  Serious: Yes (Other)
  Sender: FDA-Public Use
  Company Number: US-PFIZER INC-2018153424

PATIENT
  Age: 56 Year
  Sex: Female

DRUGS (2)
  1. ENBREL [Suspect]
     Active Substance: ETANERCEPT
     Dosage: UNK
  2. METHOTREXATE SODIUM. [Suspect]
     Active Substance: METHOTREXATE SODIUM
     Dosage: UNK

REACTIONS (23)
  - Bursitis [Unknown]
  - Pulmonary mass [Unknown]
  - Hypoaesthesia [Unknown]
  - Arthralgia [Unknown]
  - Musculoskeletal pain [Unknown]
  - Peripheral swelling [Unknown]
  - Fatigue [Unknown]
  - Back injury [Unknown]
  - Burning sensation [Unknown]
  - Bone disorder [Unknown]
  - Osteitis [Unknown]
  - Pathological fracture [Unknown]
  - Wound infection [Unknown]
  - Erythema [Unknown]
  - Synovitis [Unknown]
  - Hand deformity [Unknown]
  - Pain [Unknown]
  - Fall [Unknown]
  - Paraesthesia [Unknown]
  - Joint swelling [Unknown]
  - Crepitations [Unknown]
  - Synovial cyst [Unknown]
  - Pain in extremity [Unknown]
